FAERS Safety Report 5239984-0 (Version None)
Quarter: 2007Q1

REPORT INFORMATION
  Report Type: 
  Country: None (occurrence: None)
  Receive Date: 20070216
  Receipt Date: 20070207
  Transmission Date: 20070707
  Serious: Yes (Disabling)
  Sender: FDA-Public Use
  Company Number: AU-PFIZER INC-2007002221

PATIENT
  Sex: Female
  Weight: 73 kg

DRUGS (10)
  1. DILANTIN [Suspect]
     Indication: EPILEPSY
     Dosage: DAILY DOSE:130MG
  2. EPILIM [Suspect]
     Indication: EPILEPSY
  3. LAMICTAL [Suspect]
     Indication: EPILEPSY
  4. ACETYLSALICYLIC ACID SRT [Concomitant]
     Indication: ANTIPLATELET THERAPY
  5. LIPITOR [Concomitant]
     Indication: HYPERCHOLESTEROLAEMIA
     Route: 048
  6. ENDEP [Concomitant]
     Indication: NEURALGIA
     Dosage: DAILY DOSE:25MG
     Route: 048
  7. VALIUM [Concomitant]
     Indication: CHOREA
     Route: 048
  8. SPIRIVA ^PFIZER^ [Concomitant]
     Indication: CHRONIC OBSTRUCTIVE PULMONARY DISEASE
  9. VENTOLIN [Concomitant]
  10. SYMBICORT [Concomitant]
     Route: 055

REACTIONS (8)
  - ACTIVITIES OF DAILY LIVING IMPAIRED [None]
  - CHOREOATHETOSIS [None]
  - DEPRESSION [None]
  - HEADACHE [None]
  - ILL-DEFINED DISORDER [None]
  - NAUSEA [None]
  - SOCIAL AVOIDANT BEHAVIOUR [None]
  - VOMITING [None]
